FAERS Safety Report 20100271 (Version 1)
Quarter: 2021Q4

REPORT INFORMATION
  Report Type: Other
  Country: DE (occurrence: DE)
  Receive Date: 20211123
  Receipt Date: 20211123
  Transmission Date: 20220303
  Serious: Yes (Hospitalization)
  Sender: FDA-Public Use
  Company Number: DE-CELLTRION INC.-2021DE015451

PATIENT

DRUGS (2)
  1. RITUXIMAB [Suspect]
     Active Substance: RITUXIMAB
     Indication: Rheumatoid arthritis
     Dosage: 2 DF
     Dates: start: 202106
  2. METHOTREXATE SODIUM [Concomitant]
     Active Substance: METHOTREXATE SODIUM

REACTIONS (5)
  - Granuloma annulare [Unknown]
  - Bacillary angiomatosis [Unknown]
  - Atypical mycobacterial infection [Unknown]
  - Tinea pedis [Unknown]
  - Pyoderma [Unknown]

NARRATIVE: CASE EVENT DATE: 20210723
